FAERS Safety Report 7337205-6 (Version None)
Quarter: 2011Q1

REPORT INFORMATION
  Report Type: 
  Country: None (occurrence: None)
  Receive Date: 20110308
  Receipt Date: 20110304
  Transmission Date: 20110831
  Serious: No
  Sender: FDA-Public Use
  Company Number: US-PFIZER INC-2011048315

PATIENT
  Sex: Female
  Weight: 50 kg

DRUGS (4)
  1. VISTARIL [Suspect]
     Indication: BACK PAIN
     Dosage: UNK
  2. NORFLEX [Suspect]
     Indication: NECK PAIN
  3. NORFLEX [Suspect]
     Indication: BACK PAIN
     Dosage: UNK
  4. VISTARIL [Suspect]
     Indication: NECK PAIN

REACTIONS (2)
  - MUSCULOSKELETAL DISCOMFORT [None]
  - LIMB DISCOMFORT [None]
